FAERS Safety Report 5614310-3 (Version None)
Quarter: 2008Q1

REPORT INFORMATION
  Report Type: 
  Country: None (occurrence: None)
  Receive Date: 20080130
  Receipt Date: 20070420
  Transmission Date: 20080703
  Serious: No
  Sender: FDA-Public Use
  Company Number: NL01PV07.02263

PATIENT
  Sex: Female

DRUGS (1)
  1. PAROXETINE [Suspect]
     Dates: end: 19990101

REACTIONS (3)
  - DRUG DEPENDENCE [None]
  - DRUG WITHDRAWAL SYNDROME [None]
  - PREMENSTRUAL SYNDROME [None]
